FAERS Safety Report 19010613 (Version 1)
Quarter: 2021Q1

REPORT INFORMATION
  Report Type: Spontaneous
  Country: US (occurrence: US)
  Receive Date: 20210315
  Receipt Date: 20210315
  Transmission Date: 20210420
  Serious: No
  Sender: FDA-Public Use
  Company Number: None

PATIENT
  Sex: Female

DRUGS (1)
  1. COSENTYX [Suspect]
     Active Substance: SECUKINUMAB
     Indication: PSORIASIS
     Route: 058
     Dates: start: 202002

REACTIONS (7)
  - Pain [None]
  - Pruritus [None]
  - Feeling abnormal [None]
  - Drug ineffective [None]
  - Scratch [None]
  - Skin haemorrhage [None]
  - Musculoskeletal disorder [None]
